FAERS Safety Report 8849760 (Version 4)
Quarter: 2013Q4

REPORT INFORMATION
  Report Type: Report from Study
  Country: US (occurrence: US)
  Receive Date: 20121019
  Receipt Date: 20131010
  Transmission Date: 20140711
  Serious: Yes (Other)
  Sender: FDA-Public Use
  Company Number: US-JNJFOC-20121009614

PATIENT
  Sex: Female
  Weight: 62.14 kg

DRUGS (17)
  1. REMICADE [Suspect]
     Indication: COLITIS ULCERATIVE
     Route: 042
     Dates: start: 200905
  2. REMICADE [Suspect]
     Indication: COLITIS ULCERATIVE
     Route: 042
     Dates: start: 200812
  3. REMICADE [Suspect]
     Indication: COLITIS ULCERATIVE
     Route: 042
     Dates: start: 201209
  4. REMICADE [Suspect]
     Indication: COLITIS ULCERATIVE
     Route: 042
  5. LIALDA [Suspect]
     Indication: INFLAMMATION
     Route: 048
  6. LIALDA [Suspect]
     Indication: INFLAMMATION
     Route: 048
  7. LIALDA [Suspect]
     Indication: INFLAMMATION
     Route: 048
     Dates: start: 200812
  8. SYNTHROID [Concomitant]
  9. HRT [Concomitant]
  10. ALEVE [Concomitant]
  11. VITAMIN D [Concomitant]
  12. VITAMIN C [Concomitant]
  13. CALCIUM [Concomitant]
  14. BIOTIN [Concomitant]
  15. FISH OIL [Concomitant]
  16. NEXIUM [Concomitant]
  17. MULTIVIT [Concomitant]

REACTIONS (14)
  - Musculoskeletal stiffness [Recovering/Resolving]
  - Proctitis ulcerative [Unknown]
  - Hair texture abnormal [Not Recovered/Not Resolved]
  - Dysphonia [Not Recovered/Not Resolved]
  - Dry throat [Not Recovered/Not Resolved]
  - Pain in extremity [Not Recovered/Not Resolved]
  - Vasodilatation [Not Recovered/Not Resolved]
  - Colitis ulcerative [Not Recovered/Not Resolved]
  - Dry skin [Not Recovered/Not Resolved]
  - Arthralgia [Not Recovered/Not Resolved]
  - Vein disorder [Not Recovered/Not Resolved]
  - Onychoclasis [Not Recovered/Not Resolved]
  - Arthralgia [Unknown]
  - Arthritis [Not Recovered/Not Resolved]
